FAERS Safety Report 8068966-9 (Version None)
Quarter: 2012Q1

REPORT INFORMATION
  Report Type: 
  Country: None (occurrence: None)
  Receive Date: 20120118
  Receipt Date: 20120104
  Transmission Date: 20120608
  Serious: Yes (Other)
  Sender: FDA-Public Use
  Company Number: DSJ-2012-00221

PATIENT
  Age: 68 Year
  Sex: Female

DRUGS (5)
  1. ACETYLSALICYLIC ACID SRT [Suspect]
     Indication: PRODUCT USED FOR UNKNOWN INDICATION
     Dates: end: 20110801
  2. ORPHENADRINE / METAMIZOLE/ CAFFEINE [Suspect]
     Indication: PRODUCT USED FOR UNKNOWN INDICATION
     Dosage: 35MG/300MG/50MG, - UNKNOWN
     Dates: end: 20110801
  3. SIMVASTATIN [Concomitant]
  4. BENICAR ANLO (OLMESARTAN MEDOXMIL, AMLODIPINE) [Suspect]
     Indication: HYPERTENSION
     Dosage: 20/5 MG (1 IN 1 D), PER ORAL; 20/5 MG ( 1 IN 1 D), ORAL
     Route: 048
     Dates: start: 20111113
  5. BENICAR ANLO (OLMESARTAN MEDOXMIL, AMLODIPINE) [Suspect]
     Indication: HYPERTENSION
     Dosage: 20/5 MG (1 IN 1 D), PER ORAL; 20/5 MG ( 1 IN 1 D), ORAL
     Route: 048
     Dates: start: 20080101, end: 20110801

REACTIONS (3)
  - CATARACT [None]
  - PRURITUS [None]
  - DRUG HYPERSENSITIVITY [None]
